FAERS Safety Report 16141172 (Version 2)
Quarter: 2019Q2

REPORT INFORMATION
  Report Type: Spontaneous
  Country: US (occurrence: US)
  Receive Date: 20190401
  Receipt Date: 20190515
  Transmission Date: 20190711
  Serious: No
  Sender: FDA-Public Use
  Company Number: US-PFIZER INC-2019126613

PATIENT
  Age: 40 Year
  Sex: Male
  Weight: 92.97 kg

DRUGS (4)
  1. ALPRAZOLAM. [Suspect]
     Active Substance: ALPRAZOLAM
     Dosage: 0.5 MG, AS NEEDED (5TH TABLET IF NEEDED IF PANIC IS WORSE)
     Route: 048
  2. ALPRAZOLAM. [Suspect]
     Active Substance: ALPRAZOLAM
     Indication: PANIC DISORDER
     Dosage: 0.5 MG, 4X/DAY
     Route: 048
  3. FLUVOXAMINE MALEATE. [Concomitant]
     Active Substance: FLUVOXAMINE MALEATE
     Indication: OBSESSIVE-COMPULSIVE DISORDER
     Dosage: 200 MG, 1X/DAY (IN THE MORNING)
     Route: 048
  4. FLUVOXAMINE MALEATE. [Concomitant]
     Active Substance: FLUVOXAMINE MALEATE
     Indication: ANXIETY

REACTIONS (3)
  - Withdrawal syndrome [Unknown]
  - Dizziness [Unknown]
  - Drug ineffective [Unknown]

NARRATIVE: CASE EVENT DATE: 201902
